FAERS Safety Report 7198098-3 (Version None)
Quarter: 2010Q4

REPORT INFORMATION
  Report Type: 
  Country: None (occurrence: None)
  Receive Date: 20101214
  Receipt Date: 20101203
  Transmission Date: 20110411
  Serious: Yes (Hospitalization)
  Sender: FDA-Public Use
  Company Number: 770163

PATIENT

DRUGS (1)
  1. STERILE WATER [Suspect]
     Indication: PRODUCT USED FOR UNKNOWN INDICATION
     Dosage: OTHER
     Route: 050

REACTIONS (7)
  - CIRCUMSTANCE OR INFORMATION CAPABLE OF LEADING TO MEDICATION ERROR [None]
  - CONVULSION [None]
  - DRUG DISPENSING ERROR [None]
  - NAUSEA [None]
  - PRODUCT LABEL ISSUE [None]
  - VOMITING [None]
  - WRONG DRUG ADMINISTERED [None]
